FAERS Safety Report 13708812 (Version 3)
Quarter: 2017Q4

REPORT INFORMATION
  Report Type: Report from Study
  Country: None (occurrence: CA)
  Receive Date: 20170630
  Receipt Date: 20171219
  Transmission Date: 20180320
  Serious: Yes (Other)
  Sender: FDA-Public Use
  Company Number: CA-ABBVIE-17P-028-2025096-00

PATIENT
  Sex: Male
  Weight: 90 kg

DRUGS (4)
  1. LUPRON DEPOT [Suspect]
     Active Substance: LEUPROLIDE ACETATE
     Route: 050
  2. TRAMADOL. [Concomitant]
     Active Substance: TRAMADOL
     Indication: PRODUCT USED FOR UNKNOWN INDICATION
  3. LUPRON DEPOT [Suspect]
     Active Substance: LEUPROLIDE ACETATE
     Indication: PROSTATE CANCER
     Route: 030
     Dates: start: 20170103
  4. TAMSULOSIN [Concomitant]
     Active Substance: TAMSULOSIN
     Indication: PRODUCT USED FOR UNKNOWN INDICATION

REACTIONS (21)
  - Arthralgia [Unknown]
  - Gait disturbance [Unknown]
  - Micturition urgency [Not Recovered/Not Resolved]
  - Pain in extremity [Unknown]
  - Cough [Unknown]
  - Nail bed disorder [Unknown]
  - Dyspnoea [Not Recovered/Not Resolved]
  - Malignant neoplasm of unknown primary site [Not Recovered/Not Resolved]
  - Waist circumference increased [Unknown]
  - Hypoaesthesia [Unknown]
  - Hot flush [Not Recovered/Not Resolved]
  - Feeling cold [Not Recovered/Not Resolved]
  - Feeling hot [Not Recovered/Not Resolved]
  - Pollakiuria [Not Recovered/Not Resolved]
  - Cough [Not Recovered/Not Resolved]
  - Decreased appetite [Unknown]
  - Hypoaesthesia [Not Recovered/Not Resolved]
  - Varicose vein [Unknown]
  - Nausea [Not Recovered/Not Resolved]
  - Skin discolouration [Unknown]
  - Cold sweat [Unknown]

NARRATIVE: CASE EVENT DATE: 2017
